FAERS Safety Report 6345379-9 (Version None)
Quarter: 2009Q3

REPORT INFORMATION
  Report Type: 
  Country: None (occurrence: None)
  Receive Date: 20090909
  Receipt Date: 20070521
  Transmission Date: 20100115
  Serious: Yes (Other)
  Sender: FDA-Public Use
  Company Number: US-ASTRAZENECA-2006UW25790

PATIENT
  Age: 16159 Day
  Sex: Female
  Weight: 121.1 kg

DRUGS (13)
  1. SEROQUEL [Suspect]
     Indication: DEPRESSION
     Route: 048
     Dates: start: 20000615, end: 20060910
  2. SEROQUEL [Suspect]
     Dosage: 25MG-200MG
     Route: 048
     Dates: start: 20010308
  3. GEODON [Concomitant]
  4. RISPERDAL [Concomitant]
  5. DESYREL/TRAZADONE [Concomitant]
     Indication: NERVOUSNESS
     Dosage: 100MG-150MG
     Route: 048
     Dates: start: 19970612
  6. PROZAC [Concomitant]
     Indication: NERVOUSNESS
     Dosage: 10MG-60MG
     Route: 048
     Dates: start: 19970820
  7. METFORMIN HCL [Concomitant]
     Dosage: 500MG-1700MG
     Route: 048
     Dates: start: 20021028
  8. ZOCOR [Concomitant]
     Dosage: 25MG-40MG
     Route: 048
     Dates: start: 20030527
  9. HYDROCHLOROTHIAZIDE [Concomitant]
     Route: 048
     Dates: start: 19980515
  10. NEURONTIN [Concomitant]
     Route: 048
     Dates: start: 20040713
  11. DYAZIDE [Concomitant]
     Dates: start: 20000301
  12. LANTUS [Concomitant]
     Dosage: 10 UNITS AT NIGHT TIME
     Route: 058
     Dates: start: 20021206
  13. LISINOPRIL [Concomitant]
     Dosage: 10MG-20MG
     Route: 048
     Dates: start: 20040824

REACTIONS (7)
  - CONVULSION [None]
  - DIABETES MELLITUS [None]
  - DIABETES MELLITUS INADEQUATE CONTROL [None]
  - DIABETIC NEUROPATHY [None]
  - HYPOGLYCAEMIA [None]
  - NEUROPATHY PERIPHERAL [None]
  - TYPE 1 DIABETES MELLITUS [None]
